FAERS Safety Report 24266858 (Version 2)
Quarter: 2024Q4

REPORT INFORMATION
  Report Type: Report from Study
  Country: GB (occurrence: GB)
  Receive Date: 20240830
  Receipt Date: 20241029
  Transmission Date: 20250115
  Serious: Yes (Other)
  Sender: ABBVIE
  Company Number: GB-ABBVIE-5899528

PATIENT
  Age: 64 Year
  Sex: Male

DRUGS (7)
  1. RISANKIZUMAB [Suspect]
     Active Substance: RISANKIZUMAB
     Indication: Psoriasis
     Route: 058
     Dates: start: 20210722
  2. NITROGLYCERIN [Concomitant]
     Active Substance: NITROGLYCERIN
     Indication: Cardiac disorder
     Dosage: TIME INTERVAL: AS NECESSARY: FREQUENCY TEXT: PRN?DOSE FORM: SUBLINGUAL SPRAY
     Route: 060
     Dates: start: 20210401
  3. RAMIPRIL [Concomitant]
     Active Substance: RAMIPRIL
     Indication: Cardiac disorder
     Route: 048
     Dates: start: 20210401
  4. CLOPIDOGREL [Concomitant]
     Active Substance: CLOPIDOGREL BISULFATE
     Indication: Cardiac disorder
     Route: 048
     Dates: start: 20210401
  5. LANSOPRAZOLE [Concomitant]
     Active Substance: LANSOPRAZOLE
     Indication: Gastrooesophageal reflux disease
     Route: 048
     Dates: start: 20200401
  6. ASPIRIN [Concomitant]
     Active Substance: ASPIRIN
     Indication: Cardiac disorder
     Route: 048
     Dates: start: 20210401
  7. ATORVASTATIN [Concomitant]
     Active Substance: ATORVASTATIN
     Indication: Cardiac disorder
     Route: 048
     Dates: start: 20200401

REACTIONS (1)
  - Skin papilloma [Recovered/Resolved]

NARRATIVE: CASE EVENT DATE: 20230101
